FAERS Safety Report 14161500 (Version 3)
Quarter: 2018Q4

REPORT INFORMATION
  Report Type: Spontaneous
  Country: US (occurrence: US)
  Receive Date: 20171106
  Receipt Date: 20181031
  Transmission Date: 20190204
  Serious: No
  Sender: FDA-Public Use
  Company Number: US-PFIZER INC-2017476878

PATIENT
  Age: 53 Year
  Sex: Female
  Weight: 79 kg

DRUGS (12)
  1. ATIVAN [Concomitant]
     Active Substance: LORAZEPAM
     Dosage: UNK
     Dates: start: 2009, end: 201612
  2. ALEVE [Concomitant]
     Active Substance: NAPROXEN SODIUM
     Dosage: UNK
     Dates: start: 2008
  3. PARAPLATIN [Concomitant]
     Active Substance: CARBOPLATIN
     Indication: CHEMOTHERAPY
     Dosage: UNK
  4. TAXOTERE [Concomitant]
     Active Substance: DOCETAXEL
     Indication: CHEMOTHERAPY
     Dosage: UNK
  5. CELEXA [Concomitant]
     Active Substance: CITALOPRAM HYDROBROMIDE
     Dosage: UNK
     Dates: start: 2009, end: 201612
  6. VICODIN [Concomitant]
     Active Substance: ACETAMINOPHEN\HYDROCODONE BITARTRATE
     Dosage: UNK
     Dates: start: 2009, end: 201612
  7. ZYRTEC [Concomitant]
     Active Substance: CETIRIZINE HYDROCHLORIDE
     Dosage: UNK
     Dates: start: 1990
  8. PERJETA [Concomitant]
     Active Substance: PERTUZUMAB
     Indication: HORMONE THERAPY
     Dosage: UNK
     Dates: start: 20140908, end: 201501
  9. ARIMIDEX [Concomitant]
     Active Substance: ANASTROZOLE
     Indication: HORMONE THERAPY
     Dosage: UNK
     Dates: start: 20150511
  10. DOCETAXEL. [Suspect]
     Active Substance: DOCETAXEL
     Indication: BREAST CANCER METASTATIC
     Dosage: 140 MG, 03 CYCLES, EVERY THREE WEEKS
     Dates: start: 20140908, end: 20141020
  11. HERCEPTIN [Concomitant]
     Active Substance: TRASTUZUMAB
     Indication: CHEMOTHERAPY
     Dosage: UNK
  12. TAXOL [Concomitant]
     Active Substance: PACLITAXEL
     Indication: CHEMOTHERAPY
     Dosage: UNK

REACTIONS (5)
  - Alopecia [Recovered/Resolved]
  - Madarosis [Recovered/Resolved]
  - Hair colour changes [Recovered/Resolved]
  - Hair texture abnormal [Recovered/Resolved]
  - Hair disorder [Recovered/Resolved]

NARRATIVE: CASE EVENT DATE: 201510
